FAERS Safety Report 5493682-7 (Version None)
Quarter: 2007Q4

REPORT INFORMATION
  Report Type: 
  Country: None (occurrence: None)
  Receive Date: 20071015
  Receipt Date: 20070913
  Transmission Date: 20080405
  Serious: No
  Sender: FDA-Public Use
  Company Number: 2007SP003179

PATIENT
  Age: 65 Year
  Sex: Male
  Weight: 113.3993 kg

DRUGS (3)
  1. LUNESTA [Suspect]
     Indication: INSOMNIA
     Dosage: 1 MG; HS; ORAL, 2 MG; HS; ORAL, 3 MG; HS; ORAL
     Route: 048
     Dates: start: 20070301, end: 20070501
  2. LUNESTA [Suspect]
     Indication: INSOMNIA
     Dosage: 1 MG; HS; ORAL, 2 MG; HS; ORAL, 3 MG; HS; ORAL
     Route: 048
     Dates: start: 20070501, end: 20070801
  3. LUNESTA [Suspect]
     Indication: INSOMNIA
     Dosage: 1 MG; HS; ORAL, 2 MG; HS; ORAL, 3 MG; HS; ORAL
     Route: 048
     Dates: start: 20070801

REACTIONS (2)
  - DRUG INEFFECTIVE [None]
  - MIDDLE INSOMNIA [None]
